FAERS Safety Report 22389194 (Version 1)
Quarter: 2023Q2

REPORT INFORMATION
  Report Type: Report from Study
  Country: US (occurrence: US)
  Receive Date: 20230531
  Receipt Date: 20230531
  Transmission Date: 20230722
  Serious: Yes (Other)
  Sender: FDA-Public Use
  Company Number: US-SUN PHARMACEUTICAL INDUSTRIES LTD-2023R1-392284

PATIENT
  Age: 70 Year
  Sex: Female

DRUGS (1)
  1. NIMODIPINE [Suspect]
     Active Substance: NIMODIPINE
     Indication: Hypertension
     Dosage: 60 MILLIGRAM EVERY 4 H
     Route: 065

REACTIONS (1)
  - Vasospasm [Recovered/Resolved]
